FAERS Safety Report 23082807 (Version 1)
Quarter: 2023Q4

REPORT INFORMATION
  Report Type: Report from Study
  Country: US (occurrence: US)
  Receive Date: 20231019
  Receipt Date: 20231019
  Transmission Date: 20240110
  Serious: Yes (Hospitalization, Other)
  Sender: FDA-Public Use
  Company Number: US-GILEAD-2023-0647428

PATIENT
  Age: 42 Year
  Sex: Male

DRUGS (7)
  1. AZTREONAM LYSINE [Suspect]
     Active Substance: AZTREONAM LYSINE
     Indication: Cystic fibrosis
     Dosage: UNK
     Route: 055
  2. CREON [Concomitant]
     Active Substance: PANCRELIPASE AMYLASE\PANCRELIPASE LIPASE\PANCRELIPASE PROTEASE
  3. DESVENLAFAXINE [Concomitant]
     Active Substance: DESVENLAFAXINE
  4. LAMOTRIGINE [Concomitant]
     Active Substance: LAMOTRIGINE
  5. PULMOZYME [Concomitant]
     Active Substance: DORNASE ALFA
  6. QUETIAPINE [Concomitant]
     Active Substance: QUETIAPINE
  7. VRAYLAR [Concomitant]
     Active Substance: CARIPRAZINE

REACTIONS (1)
  - Pneumonia [Unknown]
